FAERS Safety Report 23947864 (Version 1)
Quarter: 2024Q2

REPORT INFORMATION
  Report Type: Spontaneous
  Country: CN (occurrence: CN)
  Receive Date: 20240606
  Receipt Date: 20240606
  Transmission Date: 20240716
  Serious: Yes (Hospitalization)
  Sender: FDA-Public Use
  Company Number: CN-BEIGENE-BGN-2024-008379

PATIENT

DRUGS (3)
  1. TISLELIZUMAB [Suspect]
     Active Substance: TISLELIZUMAB
     Indication: Neuroendocrine tumour of the lung
     Dosage: 200 MILLIGRAM
     Route: 041
     Dates: start: 20240524
  2. ETOPOSIDE [Suspect]
     Active Substance: ETOPOSIDE
     Indication: Neuroendocrine tumour of the lung
     Dosage: 0.1 GRAM
     Dates: start: 20240524
  3. LOBAPLATIN [Suspect]
     Active Substance: LOBAPLATIN
     Indication: Neuroendocrine tumour of the lung
     Dosage: 50 MILLIGRAM
     Dates: start: 20240524

REACTIONS (2)
  - Neutrophil count decreased [Unknown]
  - White blood cell count decreased [Unknown]

NARRATIVE: CASE EVENT DATE: 20240528
